FAERS Safety Report 6086222-5 (Version None)
Quarter: 2009Q1

REPORT INFORMATION
  Report Type: 
  Country: None (occurrence: None)
  Receive Date: 20090220
  Receipt Date: 20090211
  Transmission Date: 20090719
  Serious: Yes (Hospitalization)
  Sender: FDA-Public Use
  Company Number: ZA-ABBOTT-09P-143-0503021-00

PATIENT
  Sex: Male

DRUGS (9)
  1. EPILIM CR [Suspect]
     Indication: SUICIDE ATTEMPT
     Route: 048
     Dates: start: 20080826
  2. EPILIM CR [Suspect]
     Indication: DEPRESSION
  3. SEROQUEL [Suspect]
     Indication: SUICIDE ATTEMPT
     Route: 048
  4. ZOPICLONE [Suspect]
     Indication: SUICIDE ATTEMPT
     Route: 048
  5. ELTROXIN [Concomitant]
     Indication: HYPOTHYROIDISM
  6. PAROXETINE HCL [Concomitant]
     Indication: DEPRESSION
     Route: 048
     Dates: start: 20080818, end: 20081124
  7. ADCO-SIMVASTATIN [Concomitant]
     Indication: HYPERCHOLESTEROLAEMIA
     Route: 048
  8. ZOPICLONE [Concomitant]
     Indication: INSOMNIA
     Route: 048
  9. SEROQUEL [Concomitant]
     Indication: DEPRESSION
     Route: 048
     Dates: start: 20080818, end: 20081124

REACTIONS (2)
  - MULTIPLE DRUG OVERDOSE INTENTIONAL [None]
  - SEDATION [None]
